FAERS Safety Report 23050772 (Version 2)
Quarter: 2023Q4

REPORT INFORMATION
  Report Type: Spontaneous
  Country: JP (occurrence: JP)
  Receive Date: 20231010
  Receipt Date: 20231013
  Transmission Date: 20240110
  Serious: Yes (Death)
  Sender: FDA-Public Use
  Company Number: JP-BAUSCH-BL-2023-014763

PATIENT
  Age: 62 Year
  Sex: Male
  Weight: 70 kg

DRUGS (7)
  1. DEXAMETHASONE SODIUM PHOSPHATE [Suspect]
     Active Substance: DEXAMETHASONE SODIUM PHOSPHATE
     Indication: COVID-19
     Route: 065
  2. PIPERACILLIN SODIUM\TAZOBACTAM SODIUM [Concomitant]
     Active Substance: PIPERACILLIN SODIUM\TAZOBACTAM SODIUM
     Indication: Product used for unknown indication
     Dosage: DAY 1 TO DAY 5 OF HOSPITALIZATION
     Route: 065
  3. VANCOMYCIN [Concomitant]
     Active Substance: VANCOMYCIN
     Indication: Product used for unknown indication
     Dosage: DAY 1 TO DAY 4 OF HOSPITALIZATION AND DAY 11 TO DAY 17 OF HOSPITALIZATION
     Route: 065
  4. NOREPINEPHRINE [Concomitant]
     Active Substance: NOREPINEPHRINE
     Indication: Product used for unknown indication
     Dosage: NORADRENALINE AS A VASOPRESSOR (DAY 1 TO DAY 4) AND DAY 15 TO DAY 17
     Route: 065
  5. AMPICILLIN [Concomitant]
     Active Substance: AMPICILLIN
     Indication: Pneumococcal infection
     Dosage: DAY 5 TO DAY 11 OF HOSPITALIZATION
     Route: 065
  6. MEROPENEM [Concomitant]
     Active Substance: MEROPENEM
     Indication: Pneumococcal infection
     Dosage: DAY 11 TO DAY 17 OF HOSPITALIZATION
     Route: 065
  7. OXYGEN [Concomitant]
     Active Substance: OXYGEN
     Indication: Oxygen therapy
     Dosage: OXYGEN ON A RESERVOIR FACE MASK

REACTIONS (2)
  - Pneumonia fungal [Fatal]
  - Condition aggravated [Fatal]
